FAERS Safety Report 16737903 (Version 2)
Quarter: 2020Q3

REPORT INFORMATION
  Report Type: Report from Study
  Country: None (occurrence: US)
  Receive Date: 20190824
  Receipt Date: 20200724
  Transmission Date: 20201102
  Serious: Yes (Other)
  Sender: FDA-Public Use
  Company Number: US-ABBVIE-19K-163-2899719-00

PATIENT
  Age: 58 Year
  Sex: Female

DRUGS (1)
  1. HUMIRA [Suspect]
     Active Substance: ADALIMUMAB
     Indication: UVEITIS
     Dosage: CITRATE FREE
     Route: 058

REACTIONS (3)
  - Incorrect dose administered [Unknown]
  - Blindness [Not Recovered/Not Resolved]
  - Injury associated with device [Unknown]

NARRATIVE: CASE EVENT DATE: 20200712
